FAERS Safety Report 8939927 (Version 1)
Quarter: 2012Q4

REPORT INFORMATION
  Report Type: 
  Country: US (occurrence: US)
  Receive Date: 20121203
  Receipt Date: 20121203
  Transmission Date: 20130627
  Serious: Yes (Death)
  Sender: FDA-Public Use
  Company Number: US-009507513-1211USA012822

PATIENT

DRUGS (1)
  1. INTRONA [Suspect]
     Dosage: UNK

REACTIONS (1)
  - Death [Fatal]
